FAERS Safety Report 8947932 (Version 1)
Quarter: 2012Q4

REPORT INFORMATION
  Report Type: Spontaneous
  Country: IT (occurrence: None)
  Receive Date: 20121127
  Receipt Date: 20121127
  Transmission Date: 20130627
  Serious: Yes (Life-Threatening)
  Sender: FDA-Public Use
  Company Number: IT-SEPTODONT-201200840

PATIENT
  Age: 35 Year
  Sex: Female

DRUGS (1)
  1. MEPIVACAINE HYDROCHLORIDE [Suspect]
     Indication: LOCAL ANAESTHESIA
     Dosage: Dental U.S.P. 3%
     Route: 004

REACTIONS (5)
  - Carotid artery dissection [None]
  - Pain in jaw [None]
  - Neck pain [None]
  - Tongue paralysis [None]
  - Speech disorder [None]
